FAERS Safety Report 20908625 (Version 1)
Quarter: 2022Q2

REPORT INFORMATION
  Report Type: Report from Study
  Country: US (occurrence: US)
  Receive Date: 20220603
  Receipt Date: 20220603
  Transmission Date: 20220720
  Serious: Yes (Hospitalization, Other)
  Sender: FDA-Public Use
  Company Number: US-CELLTRION INC.-2022US007874

PATIENT

DRUGS (4)
  1. RITUXIMAB [Suspect]
     Active Substance: RITUXIMAB
     Indication: Lymphoma
     Dosage: 700 MG, Q4WEEKS
     Route: 042
     Dates: start: 20220203
  2. RITUXIMAB [Suspect]
     Active Substance: RITUXIMAB
     Dosage: LAST DOSE OF RITUXIMAB PRIOR TO THE SAE
     Dates: start: 20220302
  3. LENALIDOMIDE [Suspect]
     Active Substance: LENALIDOMIDE
     Indication: Lymphoma
     Dosage: 20 MG, QD, DAYS 1-21
     Route: 048
     Dates: start: 20220202, end: 20220312
  4. LENALIDOMIDE [Suspect]
     Active Substance: LENALIDOMIDE
     Dosage: LAST DOSE OF LENALIDOMIDE PRIOR TO THE SAE
     Dates: start: 20220311

REACTIONS (10)
  - Febrile neutropenia [Recovering/Resolving]
  - Neutropenia [Unknown]
  - Sinusitis [Unknown]
  - Gastroenteritis Escherichia coli [Unknown]
  - Upper respiratory tract infection [Unknown]
  - Pyrexia [Unknown]
  - Chills [Unknown]
  - Nasal congestion [Unknown]
  - Oropharyngeal pain [Unknown]
  - Productive cough [Unknown]

NARRATIVE: CASE EVENT DATE: 20220309
